FAERS Safety Report 7125177-9 (Version None)
Quarter: 2010Q4

REPORT INFORMATION
  Report Type: 
  Country: None (occurrence: None)
  Receive Date: 20101129
  Receipt Date: 20101116
  Transmission Date: 20110411
  Serious: No
  Sender: FDA-Public Use
  Company Number: FR-JNJFOC-20101005545

PATIENT
  Sex: Female
  Weight: 65 kg

DRUGS (6)
  1. DURAGESIC-100 [Suspect]
     Indication: CANCER PAIN
     Route: 062
  2. ACTIQ [Suspect]
     Indication: CANCER PAIN
     Route: 048
  3. CORTANCYL [Concomitant]
     Indication: CANCER PAIN
     Route: 048
  4. PARACETAMOL [Concomitant]
     Indication: CANCER PAIN
     Route: 048
  5. SEROPLEX [Concomitant]
     Indication: DEPRESSION
     Route: 048
  6. TRANSIPEG [Concomitant]
     Indication: CONSTIPATION
     Route: 048

REACTIONS (6)
  - APPLICATION SITE IRRITATION [None]
  - DRUG INEFFECTIVE [None]
  - INAPPROPRIATE SCHEDULE OF DRUG ADMINISTRATION [None]
  - PRODUCT SOLUBILITY ABNORMAL [None]
  - SALIVARY HYPERSECRETION [None]
  - STOMATITIS [None]
